FAERS Safety Report 7887009-0 (Version None)
Quarter: 2011Q4

REPORT INFORMATION
  Report Type: 
  Country: None (occurrence: None)
  Receive Date: 20111102
  Receipt Date: 20110713
  Transmission Date: 20120403
  Serious: No
  Sender: FDA-Public Use
  Company Number: US-AMGEN-USASP2011035637

PATIENT
  Age: 81 Year
  Sex: Male

DRUGS (1)
  1. ENBREL [Suspect]
     Indication: PSORIATIC ARTHROPATHY
     Dosage: 50 MG, QWK
     Dates: start: 20101129, end: 20110601

REACTIONS (5)
  - VISUAL IMPAIRMENT [None]
  - OEDEMA PERIPHERAL [None]
  - CATARACT [None]
  - PAIN [None]
  - JOINT SWELLING [None]
